FAERS Safety Report 9282305 (Version 1)
Quarter: 2013Q2

REPORT INFORMATION
  Report Type: Spontaneous
  Country: JP (occurrence: JP)
  Receive Date: 20130510
  Receipt Date: 20130510
  Transmission Date: 20140414
  Serious: Yes (Other)
  Sender: FDA-Public Use
  Company Number: JP-009507513-1305JPN003349

PATIENT
  Age: 50 Year
  Sex: Male
  Weight: 65 kg

DRUGS (13)
  1. PEGINTRON [Suspect]
     Indication: CHRONIC HEPATITIS C
     Dosage: 1.5 MICROGRAM/KG/WEEK
     Route: 058
     Dates: start: 20121204
  2. REBETOL [Suspect]
     Indication: CHRONIC HEPATITIS C
     Dosage: 800 MG, QD
     Route: 048
     Dates: start: 20121204, end: 20121209
  3. REBETOL [Suspect]
     Dosage: 200 MG, QD
     Route: 048
     Dates: start: 20130102, end: 20130107
  4. REBETOL [Suspect]
     Dosage: 400 MG, QD
     Route: 048
     Dates: start: 20130108, end: 20130110
  5. REBETOL [Suspect]
     Dosage: 600 MG, QD
     Route: 048
     Dates: start: 20130111
  6. REBETOL [Suspect]
     Dosage: 800 MG, QD
     Route: 048
     Dates: start: 20130115
  7. TELAVIC [Suspect]
     Indication: CHRONIC HEPATITIS C
     Dosage: 750 MG, TID
     Route: 048
     Dates: start: 20121204, end: 20121209
  8. TELAVIC [Suspect]
     Dosage: 750 MG, BID
     Route: 048
     Dates: start: 20121210
  9. ONEALFA [Concomitant]
     Dosage: 1 MG, QD: POR
     Route: 048
     Dates: start: 20121204
  10. ALLEGRA [Concomitant]
     Indication: PROPHYLAXIS
     Dosage: 120 MG, QD;POR
     Route: 048
     Dates: start: 20121204, end: 20130319
  11. MINIPLANOR [Concomitant]
     Indication: PROPHYLAXIS
     Dosage: 200 MG, QD;POR
     Route: 048
     Dates: start: 20121204
  12. PARIET [Concomitant]
     Indication: PROPHYLAXIS
     Dosage: 10 MG, QD;POR
     Route: 048
     Dates: start: 20121204
  13. KENTAN [Concomitant]
     Indication: PROPHYLAXIS
     Dosage: 60 MG, QD;POR
     Route: 048
     Dates: start: 20121204, end: 20121211

REACTIONS (1)
  - Renal impairment [Recovered/Resolved]
